FAERS Safety Report 11121798 (Version 1)
Quarter: 2015Q2

REPORT INFORMATION
  Report Type: Spontaneous
  Country: US (occurrence: None)
  Receive Date: 20150518
  Receipt Date: 20150518
  Transmission Date: 20150821
  Serious: Yes (Hospitalization)
  Sender: FDA-Public Use
  Company Number: None

PATIENT
  Age: 49 Year
  Sex: Male
  Weight: 81.65 kg

DRUGS (2)
  1. EQUATE NICOTINE [Suspect]
     Active Substance: NICOTINE
     Indication: MEMORY IMPAIRMENT
     Dosage: BY MOUTH, 27 LOZENGES
     Route: 048
     Dates: start: 20130601
  2. EQUATE NICOTINE [Suspect]
     Active Substance: NICOTINE
     Indication: DISTURBANCE IN ATTENTION
     Dosage: BY MOUTH, 27 LOZENGES
     Route: 048
     Dates: start: 20130601

REACTIONS (1)
  - Cardiac disorder [None]

NARRATIVE: CASE EVENT DATE: 20140523
